FAERS Safety Report 25037500 (Version 4)
Quarter: 2025Q1

REPORT INFORMATION
  Report Type: Spontaneous
  Country: US (occurrence: US)
  Receive Date: 20250304
  Receipt Date: 20250324
  Transmission Date: 20250408
  Serious: No
  Sender: ROCHE
  Company Number: US-ROCHE-10000219449

PATIENT
  Age: 71 Year
  Sex: Female
  Weight: 89.35 kg

DRUGS (24)
  1. XOLAIR [Suspect]
     Active Substance: OMALIZUMAB
     Indication: Product used for unknown indication
     Dosage: LAST DOSE ON 17-JAN-2025?300MG/2ML
     Route: 058
     Dates: start: 20250118
  2. XOLAIR [Suspect]
     Active Substance: OMALIZUMAB
     Route: 058
  3. XOLAIR [Suspect]
     Active Substance: OMALIZUMAB
     Route: 058
  4. ACETAMINOPHEN [Concomitant]
     Active Substance: ACETAMINOPHEN
     Indication: Headache
     Dosage: TAKING 2 TABS DAILY 325 MG?TAKE 1 TABLET (500 MG) BY MOUTH 2 TIMES A DAY AS NEEDED
     Route: 048
  5. ALBUTEROL SULFATE [Concomitant]
     Active Substance: ALBUTEROL SULFATE
     Indication: Wheezing
     Dosage: INHALE TWO PUFFS BY MOUTH EVERY 4 HOURS AS NEEDED
     Route: 048
  6. ASCORBIC ACID [Concomitant]
     Active Substance: ASCORBIC ACID
     Route: 048
  7. ASPIRIN [Concomitant]
     Active Substance: ASPIRIN
     Dosage: CHEW AND SWALLOW 1 TABLET (81 MG) BY MOUTH DAILY
     Route: 048
  8. ATORVASTATIN [Concomitant]
     Active Substance: ATORVASTATIN
     Dosage: TAKE 1 TABLET (80 MG) BY MOUTH DAILY
     Route: 048
  9. BUPROPION [Concomitant]
     Active Substance: BUPROPION
     Dosage: TABLET EXTENDED-RELEASE 24 HOUR?300 MGTAKE 1 TABLET (300 MG) BY MOUTH DAILY
     Route: 048
  10. CYANOCOBALAMIN [Concomitant]
     Active Substance: CYANOCOBALAMIN
     Route: 048
  11. DONEPEZIL [Concomitant]
     Active Substance: DONEPEZIL
     Route: 048
  12. DULOXETINE [Concomitant]
     Active Substance: DULOXETINE
     Dosage: CAPSULE DELAYED-RELEASE PARTICLES?60 MG  TAKE 1 CAPSULE (60 MG) BY MOUTH DAILY
     Route: 048
  13. ESOMEPRAZOLE [Concomitant]
     Active Substance: ESOMEPRAZOLE
     Dosage: (CAPSULE DELAYED-RELEASE)?40 MG  TAKE 1 CAPSULE (40 MG) BY MOUTH 2 TIMES A DAY
     Route: 048
  14. ETODOLAC [Concomitant]
     Active Substance: ETODOLAC
     Dosage: 400 MGTAKE 1 TABLET (400 MG) BY MOUTH 2 TIMES A DAY WITH MEALS
  15. FEXOFENADINE HYDROCHLORIDE [Concomitant]
     Active Substance: FEXOFENADINE HYDROCHLORIDE
     Dosage: TAKE 180 MG BY MOUTH 2 TIMES A DAY
     Route: 048
  16. LEVOTHYROXINE [Concomitant]
     Active Substance: LEVOTHYROXINE
     Dosage: TAKE ONE TABLET BY MOUTH DAILY ON AN EMPTY STOMACH
     Route: 048
  17. MECLIZINE [Concomitant]
     Active Substance: MECLIZINE HYDROCHLORIDE
     Indication: Dizziness
     Dosage: TAKE ONE TO TWO TABLETS BY MOUTH THREE TIMES A DAY AS NEEDED
     Route: 048
  18. MEMANTINE [Concomitant]
     Active Substance: MEMANTINE
     Route: 048
  19. METHOCARBAMOL [Concomitant]
     Active Substance: METHOCARBAMOL
     Indication: Muscle spasms
     Dosage: TAKE 1-2 TABLETS (500-1,000 MG) BY MOUTH EVERY 6 HOURS AS NEEDED FOR MUSCLE SPASMS
     Route: 048
  20. DULERA [Concomitant]
     Active Substance: FORMOTEROL FUMARATE DIHYDRATE\MOMETASONE FUROATE
     Dosage: INHALE 2 PUFFS BY MOUTH 2 TIMES A DAY, AEROSOL 100-5 MCG/ACT
     Route: 048
  21. NITROGLYCERIN [Concomitant]
     Active Substance: NITROGLYCERIN
     Indication: Chest pain
  22. VITAMIN D [Concomitant]
     Active Substance: VITAMIN D NOS
     Route: 048
  23. ZINC OXIDE [Concomitant]
     Active Substance: ZINC OXIDE
     Route: 061
  24. POLYETHYLENE GLYCOL 3350 [Concomitant]
     Active Substance: POLYETHYLENE GLYCOL 3350
     Route: 048

REACTIONS (6)
  - Injection site reaction [Recovered/Resolved]
  - Product dose omission issue [Unknown]
  - Product quality issue [Unknown]
  - Device defective [Unknown]
  - Inappropriate schedule of product administration [Unknown]
  - Device failure [Unknown]

NARRATIVE: CASE EVENT DATE: 20250120
